FAERS Safety Report 7142202-X (Version None)
Quarter: 2010Q4

REPORT INFORMATION
  Report Type: 
  Country: None (occurrence: None)
  Receive Date: 20101207
  Receipt Date: 20101124
  Transmission Date: 20110411
  Serious: No
  Sender: FDA-Public Use
  Company Number: US-PFIZER INC-2010157294

PATIENT
  Sex: Female
  Weight: 56.236 kg

DRUGS (4)
  1. XALATAN [Suspect]
     Indication: GLAUCOMA
     Dosage: UNK, DAILY
     Route: 047
  2. COSOPT [Suspect]
     Indication: GLAUCOMA
     Dosage: UNK, 2X/DAY
     Route: 047
  3. VALSARTAN [Concomitant]
     Indication: HYPERTENSION
     Dosage: UNK
  4. AMLODIPINE [Concomitant]
     Indication: HYPERTENSION
     Dosage: UNK

REACTIONS (3)
  - COUGH [None]
  - DRY EYE [None]
  - SKIN DISCOLOURATION [None]
